FAERS Safety Report 15255611 (Version 1)
Quarter: 2018Q3

REPORT INFORMATION
  Report Type: Spontaneous
  Country: US (occurrence: US)
  Receive Date: 20180717
  Receipt Date: 20180717
  Transmission Date: 20181010
  Serious: Yes (Hospitalization, Disabling)
  Sender: FDA-Public Use
  Company Number: None

PATIENT
  Age: 25 Year
  Sex: Female
  Weight: 63 kg

DRUGS (5)
  1. VITAMIN D [Concomitant]
     Active Substance: CHOLECALCIFEROL
  2. NORETHINDRONE. [Concomitant]
     Active Substance: NORETHINDRONE
  3. BIRTHCONTROL [Concomitant]
  4. CIPROFLOXACIN. [Suspect]
     Active Substance: CIPROFLOXACIN
     Indication: URINARY TRACT INFECTION
     Dosage: ?          QUANTITY:1 TABLET(S);?
     Route: 048
     Dates: start: 20180326, end: 20180328
  5. VITAMIN B12 [Concomitant]
     Active Substance: CYANOCOBALAMIN

REACTIONS (10)
  - Cold sweat [None]
  - Chest pain [None]
  - Anxiety [None]
  - Diarrhoea [None]
  - Tremor [None]
  - Pain in extremity [None]
  - Bladder pain [None]
  - Paraesthesia [None]
  - Therapy cessation [None]
  - Back pain [None]

NARRATIVE: CASE EVENT DATE: 20180328
